FAERS Safety Report 8831639 (Version 2)
Quarter: 2012Q4

REPORT INFORMATION
  Report Type: 
  Country: JP (occurrence: JP)
  Receive Date: 20121009
  Receipt Date: 20121025
  Transmission Date: 20130627
  Serious: Yes (Other)
  Sender: FDA-Public Use
  Company Number: JP-GLAXOSMITHKLINE-B0835764A

PATIENT
  Age: 14 Year
  Sex: Male
  Weight: 44.3 kg

DRUGS (2)
  1. BETAMETHASONE VALERATE [Suspect]
     Indication: DERMATITIS ATOPIC
     Route: 061
  2. BETAMETHASONE BUTYRATE PROPIONATE [Suspect]
     Route: 061

REACTIONS (5)
  - Adrenal insufficiency [Unknown]
  - Cushingoid [Unknown]
  - Failure to thrive [Unknown]
  - Central obesity [Unknown]
  - Skin striae [Unknown]
